FAERS Safety Report 24303618 (Version 1)
Quarter: 2024Q3

REPORT INFORMATION
  Report Type: Spontaneous
  Country: US (occurrence: None)
  Receive Date: 20240909
  Receipt Date: 20240909
  Transmission Date: 20241016
  Serious: No
  Sender: Public
  Company Number: None

PATIENT
  Age: 36 Year
  Sex: Female
  Weight: 63.9 kg

DRUGS (2)
  1. DIAZEPAM [Suspect]
     Active Substance: DIAZEPAM
     Indication: Anxiety
     Dosage: 4 TABLETS 4 TIMES A DAY ORAL
     Route: 048
     Dates: start: 20210821, end: 20240107
  2. LEXAPRO [Suspect]
     Active Substance: ESCITALOPRAM OXALATE
     Indication: Depression
     Dosage: 1 TABLET DAILY ORAL
     Route: 048
     Dates: start: 20240107, end: 20240107

REACTIONS (5)
  - Suicide attempt [None]
  - Intentional product use issue [None]
  - Coma [None]
  - Vomiting [None]
  - Drug ineffective [None]

NARRATIVE: CASE EVENT DATE: 20240107
